FAERS Safety Report 8572573-9 (Version None)
Quarter: 2012Q3

REPORT INFORMATION
  Report Type: 
  Country: None (occurrence: None)
  Receive Date: 20120806
  Receipt Date: 20120606
  Transmission Date: 20120928
  Serious: Yes (Other)
  Sender: FDA-Public Use
  Company Number: FR-ROCHE-1095775

PATIENT
  Sex: Male

DRUGS (13)
  1. IRINOTECAN HCL [Concomitant]
     Dates: start: 20100323, end: 20100506
  2. FLUOROURACIL [Concomitant]
     Dates: start: 20100819, end: 20100917
  3. IRINOTECAN HCL [Concomitant]
     Dates: start: 20090511, end: 20091016
  4. AVASTIN [Suspect]
     Dates: start: 20100819, end: 20100917
  5. LEUCOVORIN CALCIUM [Concomitant]
     Dates: start: 20100323, end: 20100506
  6. FLUOROURACIL [Concomitant]
     Dates: start: 20100323, end: 20100506
  7. LEUCOVORIN CALCIUM [Concomitant]
     Dates: start: 20100520, end: 20100624
  8. FLUOROURACIL [Concomitant]
     Dates: start: 20090511, end: 20091016
  9. LEUCOVORIN CALCIUM [Concomitant]
     Dates: start: 20100819, end: 20100917
  10. FLUOROURACIL [Concomitant]
     Dates: start: 20100520, end: 20100624
  11. AVASTIN [Suspect]
     Indication: COLON CANCER
     Dates: start: 20100323, end: 20100506
  12. LEUCOVORIN CALCIUM [Concomitant]
     Dates: start: 20090511, end: 20091016
  13. IRINOTECAN HCL [Concomitant]
     Dates: start: 20100520, end: 20100624

REACTIONS (2)
  - DIARRHOEA [None]
  - DISEASE PROGRESSION [None]
